FAERS Safety Report 21595998 (Version 2)
Quarter: 2023Q1

REPORT INFORMATION
  Report Type: Spontaneous
  Country: US (occurrence: US)
  Receive Date: 20221115
  Receipt Date: 20230207
  Transmission Date: 20230417
  Serious: Yes (Other)
  Sender: FDA-Public Use
  Company Number: US-drreddys-SPO/USA/22/0157010

PATIENT
  Age: 66 Year
  Sex: Male

DRUGS (4)
  1. TACROLIMUS [Interacting]
     Active Substance: TACROLIMUS
     Indication: Immunosuppressant drug therapy
     Dosage: 4-8 NG/ML
  2. RITONAVIR [Interacting]
     Active Substance: RITONAVIR
     Indication: Antiviral treatment
     Dosage: CONTINUED
     Route: 048
  3. NIRMATRELVIR [Interacting]
     Active Substance: NIRMATRELVIR
     Indication: Antiviral treatment
     Dosage: CONTINUED
     Route: 048
  4. MYCOPHENOLATE MOFETIL [Concomitant]
     Active Substance: MYCOPHENOLATE MOFETIL
     Indication: Product used for unknown indication

REACTIONS (4)
  - Drug interaction [Unknown]
  - Toxicity to various agents [Unknown]
  - Drug level increased [Unknown]
  - Blood creatinine increased [Unknown]
